FAERS Safety Report 21340408 (Version 1)
Quarter: 2022Q3

REPORT INFORMATION
  Report Type: Spontaneous
  Country: US (occurrence: None)
  Receive Date: 20220915
  Receipt Date: 20220915
  Transmission Date: 20221026
  Serious: Yes (Hospitalization)
  Sender: FDA-Public Use
  Company Number: None

PATIENT
  Sex: Male

DRUGS (4)
  1. ATOVAQUONE [Suspect]
     Active Substance: ATOVAQUONE
     Indication: HIV infection
     Dosage: OTHER QUANTITY : 750MG/5ML;?FREQUENCY : DAILY;?
     Route: 048
     Dates: start: 20220722
  2. ATAZANAVIR CAP [Concomitant]
  3. ISENTERSS TAB [Concomitant]
  4. RITONAVIR TAB [Concomitant]

REACTIONS (3)
  - Procedural nausea [None]
  - Procedural vomiting [None]
  - Product dose omission issue [None]
